FAERS Safety Report 7006595-6 (Version None)
Quarter: 2010Q3

REPORT INFORMATION
  Report Type: 
  Country: None (occurrence: None)
  Receive Date: 20100921
  Receipt Date: 20100921
  Transmission Date: 20110219
  Serious: Yes (Death)
  Sender: FDA-Public Use
  Company Number: None

PATIENT
  Sex: Female
  Weight: 117.028 kg

DRUGS (12)
  1. SAPHRIS [Suspect]
     Indication: BIPOLAR DISORDER
     Dosage: 7.5 MG/DAY 2.5MG QAM; 5MG QHS PO
     Route: 048
     Dates: start: 20100802, end: 20100816
  2. PLAQUENIL [Concomitant]
  3. LAMICTAL [Concomitant]
  4. PRILOSEC [Concomitant]
  5. MULTI-VITAMIN [Concomitant]
  6. CALCIUM SUPPLEMENT [Concomitant]
  7. MAGNESIUM OXIDE [Concomitant]
  8. TRILEPTAL [Concomitant]
  9. ZYPREXA [Concomitant]
  10. LORAZEPAM [Concomitant]
  11. LITHIUM CARBONATE [Concomitant]
  12. ABILIFY [Concomitant]

REACTIONS (3)
  - FALL [None]
  - PULMONARY EMBOLISM [None]
  - RESPIRATORY ARREST [None]
